FAERS Safety Report 4318516-5 (Version None)
Quarter: 2004Q1

REPORT INFORMATION
  Report Type: 
  Country: None (occurrence: None)
  Receive Date: 20040318
  Receipt Date: 20040120
  Transmission Date: 20041129
  Serious: Yes (Hospitalization)
  Sender: FDA-Public Use
  Company Number: 200410893JP

PATIENT
  Age: 74 Year
  Sex: Female

DRUGS (14)
  1. ARAVA [Suspect]
     Indication: RHEUMATOID ARTHRITIS
     Route: 048
     Dates: start: 20031128, end: 20031229
  2. RHEUMATREX [Concomitant]
     Indication: RHEUMATOID ARTHRITIS
     Route: 048
     Dates: start: 20031003, end: 20031104
  3. AZULFIDINE [Concomitant]
     Indication: RHEUMATOID ARTHRITIS
     Route: 048
     Dates: end: 20031127
  4. FOLIAMIN [Concomitant]
     Indication: PROPHYLAXIS
     Route: 048
     Dates: start: 20031003, end: 20031104
  5. PREDONINE [Concomitant]
     Indication: INFLAMMATION
     Route: 048
  6. PREDONINE [Concomitant]
     Indication: PAIN
     Route: 048
  7. PEON [Concomitant]
     Indication: INFLAMMATION
     Route: 048
     Dates: end: 20031225
  8. PEON [Concomitant]
     Indication: PAIN
     Route: 048
     Dates: end: 20031225
  9. ACTONEL [Concomitant]
     Indication: OSTEOPOROSIS
     Route: 048
  10. ROCALTROL [Concomitant]
     Indication: OSTEOPOROSIS
     Dosage: DOSE: 2C
     Route: 048
  11. GASTER [Concomitant]
     Indication: GASTRIC ULCER
     Dosage: DOSE: 4T
     Route: 048
  12. URSO [Concomitant]
     Indication: HEPATITIS
     Route: 048
  13. CYANOCOBALAMIN [Concomitant]
     Indication: HYPOAESTHESIA
     Dosage: DOSE: 3T
     Route: 048
  14. GLUCONSAN K [Concomitant]
     Indication: BLOOD POTASSIUM DECREASED
     Route: 048
     Dates: start: 20031127

REACTIONS (7)
  - CACHEXIA [None]
  - DECREASED APPETITE [None]
  - DIARRHOEA [None]
  - MALAISE [None]
  - NAUSEA [None]
  - RHEUMATOID ARTHRITIS [None]
  - VOMITING [None]
